FAERS Safety Report 9720759 (Version 2)
Quarter: 2013Q4

REPORT INFORMATION
  Report Type: Spontaneous
  Country: IT (occurrence: IT)
  Receive Date: 20131129
  Receipt Date: 20131129
  Transmission Date: 20140711
  Serious: Yes (Hospitalization)
  Sender: FDA-Public Use
  Company Number: PHHY2013IT132823

PATIENT
  Age: 58 Year
  Sex: Male

DRUGS (2)
  1. VOLTAREN [Suspect]
     Indication: MUSCULOSKELETAL PAIN
     Dosage: UNK UKN, UNK
     Dates: start: 20130622, end: 20130622
  2. VOLTADVANCE [Suspect]
     Indication: MUSCULOSKELETAL PAIN
     Dosage: UNK UKN, UNK
     Dates: start: 20130622, end: 20130622

REACTIONS (1)
  - Throat tightness [Recovered/Resolved]
